FAERS Safety Report 8042613-4 (Version None)
Quarter: 2012Q1

REPORT INFORMATION
  Report Type: 
  Country: None (occurrence: None)
  Receive Date: 20120112
  Receipt Date: 20120110
  Transmission Date: 20120608
  Serious: No
  Sender: FDA-Public Use
  Company Number: US-PFIZER INC-2012007744

PATIENT
  Sex: Female
  Weight: 45.351 kg

DRUGS (2)
  1. COSOPT [Concomitant]
     Indication: GLAUCOMA
     Dosage: UNK, 2X/DAY
  2. XALATAN [Suspect]
     Indication: GLAUCOMA
     Dosage: UNK, 1X/DAY
     Route: 047

REACTIONS (2)
  - EYE INFECTION [None]
  - EYE DISORDER [None]
